FAERS Safety Report 20069347 (Version 1)
Quarter: 2021Q4

REPORT INFORMATION
  Report Type: Spontaneous
  Country: US (occurrence: None)
  Receive Date: 20211112
  Receipt Date: 20211112
  Transmission Date: 20220304
  Serious: Yes (Life-Threatening, Hospitalization)
  Sender: FDA-Public Use
  Company Number: None

PATIENT
  Age: 73 Year
  Sex: Male
  Weight: 116 kg

DRUGS (1)
  1. APIXABAN [Suspect]
     Active Substance: APIXABAN
     Indication: Atrial fibrillation
     Dosage: FREQUENCY : TWICE A DAY;?
     Route: 048
     Dates: start: 20200805, end: 20210727

REACTIONS (9)
  - Fall [None]
  - Dizziness [None]
  - Fatigue [None]
  - Anaemia [None]
  - Diverticulum [None]
  - Melanosis [None]
  - Polyp [None]
  - Gastrointestinal haemorrhage [None]
  - Syncope [None]

NARRATIVE: CASE EVENT DATE: 20210727
